FAERS Safety Report 22640863 (Version 1)
Quarter: 2023Q2

REPORT INFORMATION
  Report Type: Spontaneous
  Country: DE (occurrence: DE)
  Receive Date: 20230626
  Receipt Date: 20230626
  Transmission Date: 20230722
  Serious: Yes (Other)
  Sender: FDA-Public Use
  Company Number: DE-BAYER-2023A070292

PATIENT
  Sex: Female

DRUGS (20)
  1. EYLEA [Suspect]
     Active Substance: AFLIBERCEPT
     Indication: Product used for unknown indication
     Dosage: 1 DF, ONCE, RIGHT EYE (SOLUTION FOR INJECTION, 40 MG/ML)
     Route: 031
     Dates: start: 20200714, end: 20200714
  2. EYLEA [Suspect]
     Active Substance: AFLIBERCEPT
     Dosage: 1 DF, ONCE, RIGHT EYE (SOLUTION FOR INJECTION, 40 MG/ML)
     Route: 031
     Dates: start: 20200825, end: 20200825
  3. EYLEA [Suspect]
     Active Substance: AFLIBERCEPT
     Dosage: 1 DF, ONCE, RIGHT EYE (SOLUTION FOR INJECTION, 40 MG/ML)
     Route: 031
     Dates: start: 20201006, end: 20201006
  4. EYLEA [Suspect]
     Active Substance: AFLIBERCEPT
     Dosage: 1 DF, ONCE, RIGHT EYE (SOLUTION FOR INJECTION, 40 MG/ML)
     Route: 031
     Dates: start: 20201203, end: 20201203
  5. EYLEA [Suspect]
     Active Substance: AFLIBERCEPT
     Dosage: 1 DF, ONCE, RIGHT EYE (SOLUTION FOR INJECTION, 40 MG/ML)
     Route: 031
     Dates: start: 20210122, end: 20210122
  6. EYLEA [Suspect]
     Active Substance: AFLIBERCEPT
     Dosage: 1 DF, ONCE, RIGHT EYE (SOLUTION FOR INJECTION, 40 MG/ML)
     Route: 031
     Dates: start: 20210305, end: 20210305
  7. EYLEA [Suspect]
     Active Substance: AFLIBERCEPT
     Dosage: 1 DF, ONCE, RIGHT EYE (SOLUTION FOR INJECTION, 40 MG/ML)
     Route: 031
     Dates: start: 20210409, end: 20210409
  8. EYLEA [Suspect]
     Active Substance: AFLIBERCEPT
     Dosage: 1 DF, ONCE, RIGHT EYE (SOLUTION FOR INJECTION, 40 MG/ML)
     Route: 031
     Dates: start: 20210611, end: 20210611
  9. EYLEA [Suspect]
     Active Substance: AFLIBERCEPT
     Dosage: 1 DF, ONCE, RIGHT EYE (SOLUTION FOR INJECTION, 40 MG/ML)
     Route: 031
     Dates: start: 20210716, end: 20210716
  10. EYLEA [Suspect]
     Active Substance: AFLIBERCEPT
     Dosage: 1 DF, ONCE, RIGHT EYE (SOLUTION FOR INJECTION, 40 MG/ML)
     Route: 031
     Dates: start: 20210827, end: 20210827
  11. EYLEA [Suspect]
     Active Substance: AFLIBERCEPT
     Dosage: 1 DF, ONCE, RIGHT EYE (SOLUTION FOR INJECTION, 40 MG/ML)
     Route: 031
     Dates: start: 20211022, end: 20211022
  12. EYLEA [Suspect]
     Active Substance: AFLIBERCEPT
     Dosage: 1 DF, ONCE, RIGHT EYE (SOLUTION FOR INJECTION, 40 MG/ML)
     Route: 031
     Dates: start: 20211215, end: 20211215
  13. EYLEA [Suspect]
     Active Substance: AFLIBERCEPT
     Dosage: 1 DF, ONCE, RIGHT EYE (SOLUTION FOR INJECTION, 40 MG/ML)
     Route: 031
     Dates: start: 20220216, end: 20220216
  14. EYLEA [Suspect]
     Active Substance: AFLIBERCEPT
     Dosage: 1 DF, ONCE, RIGHT EYE (SOLUTION FOR INJECTION, 40 MG/ML)
     Route: 031
     Dates: start: 20220330, end: 20220330
  15. EYLEA [Suspect]
     Active Substance: AFLIBERCEPT
     Dosage: 1 DF, ONCE, RIGHT EYE (SOLUTION FOR INJECTION, 40 MG/ML)
     Route: 031
     Dates: start: 20220511, end: 20220511
  16. EYLEA [Suspect]
     Active Substance: AFLIBERCEPT
     Dosage: 1 DF, ONCE, RIGHT EYE (SOLUTION FOR INJECTION, 40 MG/ML)
     Route: 031
     Dates: start: 20220720, end: 20220720
  17. EYLEA [Suspect]
     Active Substance: AFLIBERCEPT
     Dosage: 1 DF, ONCE, RIGHT EYE (SOLUTION FOR INJECTION, 40 MG/ML)
     Route: 031
     Dates: start: 20220921, end: 20220921
  18. EYLEA [Suspect]
     Active Substance: AFLIBERCEPT
     Dosage: 1 DF, ONCE, RIGHT EYE (SOLUTION FOR INJECTION, 40 MG/ML)
     Route: 031
     Dates: start: 20221115, end: 20221115
  19. EYLEA [Suspect]
     Active Substance: AFLIBERCEPT
     Dosage: 1 DF, ONCE, RIGHT EYE (SOLUTION FOR INJECTION, 40 MG/ML)
     Route: 031
     Dates: start: 20230110, end: 20230110
  20. EYLEA [Suspect]
     Active Substance: AFLIBERCEPT
     Dosage: 1 DF, ONCE, RIGHT EYE (SOLUTION FOR INJECTION, 40 MG/ML)
     Route: 031
     Dates: start: 20230321, end: 20230321

REACTIONS (7)
  - Eye irritation [Recovered/Resolved]
  - Corneal opacity [Unknown]
  - Uveitis [Recovered/Resolved]
  - Uveitis [Recovered/Resolved]
  - Vitreal cells [Recovered/Resolved]
  - Vitreal cells [Unknown]
  - Intraocular pressure increased [Unknown]

NARRATIVE: CASE EVENT DATE: 20210920
